FAERS Safety Report 8016469-X (Version None)
Quarter: 2011Q4

REPORT INFORMATION
  Report Type: 
  Country: None (occurrence: None)
  Receive Date: 20111230
  Receipt Date: 20111221
  Transmission Date: 20120403
  Serious: Yes (Life-Threatening)
  Sender: FDA-Public Use
  Company Number: JP-ABBOTT-11P-087-0877408-00

PATIENT
  Sex: Female
  Weight: 63 kg

DRUGS (3)
  1. IBUPROFEN TABLETS [Suspect]
     Indication: LYMPHADENITIS
     Route: 048
     Dates: start: 20100723, end: 20100726
  2. CLARITHROMYCIN [Suspect]
     Indication: LYMPHADENITIS
     Route: 048
     Dates: start: 20100723, end: 20100726
  3. ACETAMINOPHEN [Concomitant]
     Indication: LYMPHADENITIS
     Route: 048
     Dates: start: 20100723, end: 20100726

REACTIONS (3)
  - SYSTEMIC INFLAMMATORY RESPONSE SYNDROME [None]
  - STEVENS-JOHNSON SYNDROME [None]
  - DISSEMINATED INTRAVASCULAR COAGULATION [None]
